FAERS Safety Report 10706840 (Version 1)
Quarter: 2015Q1

REPORT INFORMATION
  Report Type: Spontaneous
  Country: US (occurrence: None)
  Receive Date: 20150112
  Receipt Date: 20150112
  Transmission Date: 20150721
  Serious: Yes (Death)
  Sender: FDA-Public Use
  Company Number: None

PATIENT
  Age: 2 Year
  Sex: Female
  Weight: 13 kg

DRUGS (1)
  1. DEFERASIROX [Suspect]
     Active Substance: DEFERASIROX
     Indication: THALASSAEMIA
     Dosage: UNKNOWN?PATIENT WAS NOT ON ANY MEDICATIONS BUT WAS RECEIVING MONTHLY TRANSFUSIONS
     Route: 048

REACTIONS (7)
  - Hypophosphataemia [None]
  - Toxicity to various agents [None]
  - Respiratory arrest [None]
  - Hypokalaemia [None]
  - Hyperchloraemia [None]
  - Fanconi syndrome [None]
  - Acute hepatic failure [None]

NARRATIVE: CASE EVENT DATE: 20150106
